FAERS Safety Report 23913822 (Version 3)
Quarter: 2024Q4

REPORT INFORMATION
  Report Type: Report from Study
  Country: US (occurrence: US)
  Receive Date: 20240529
  Receipt Date: 20241204
  Transmission Date: 20250115
  Serious: Yes (Hospitalization, Other)
  Sender: ABBVIE
  Company Number: US-ABBVIE-5773534

PATIENT
  Age: 69 Year
  Sex: Female

DRUGS (2)
  1. SKYRIZI [Suspect]
     Active Substance: RISANKIZUMAB-RZAA
     Indication: Crohn^s disease
     Route: 058
     Dates: start: 20240404
  2. SKYRIZI [Suspect]
     Active Substance: RISANKIZUMAB-RZAA
     Route: 058
     Dates: start: 2024

REACTIONS (7)
  - Pulmonary embolism [Unknown]
  - Herpes zoster [Unknown]
  - Thrombosis [Not Recovered/Not Resolved]
  - Bronchiolitis [Unknown]
  - Liver disorder [Unknown]
  - Pain [Unknown]
  - Dyschezia [Unknown]

NARRATIVE: CASE EVENT DATE: 20240201
